FAERS Safety Report 14186839 (Version 1)
Quarter: 2017Q4

REPORT INFORMATION
  Report Type: Spontaneous
  Country: US (occurrence: US)
  Receive Date: 20171112
  Receipt Date: 20171112
  Transmission Date: 20180321
  Serious: Yes (Hospitalization)
  Sender: FDA-Public Use
  Company Number: None

PATIENT
  Age: 16 Year
  Sex: Female
  Weight: 66.15 kg

DRUGS (1)
  1. SOLODYN [Suspect]
     Active Substance: MINOCYCLINE HYDROCHLORIDE
     Indication: ACNE
     Dosage: ?          QUANTITY:90 TABLET(S);?
     Route: 048
     Dates: start: 20171025, end: 20171102

REACTIONS (6)
  - Pain [None]
  - Viral infection [None]
  - Urticaria [None]
  - Pyrexia [None]
  - Peripheral swelling [None]
  - Pruritus generalised [None]

NARRATIVE: CASE EVENT DATE: 20171111
